FAERS Safety Report 18926764 (Version 1)
Quarter: 2021Q1

REPORT INFORMATION
  Report Type: Spontaneous
  Country: US (occurrence: US)
  Receive Date: 20210223
  Receipt Date: 20210223
  Transmission Date: 20210420
  Serious: No
  Sender: FDA-Public Use
  Company Number: US-BAYER-2021-079048

PATIENT
  Sex: Female

DRUGS (2)
  1. MIRALAX [Suspect]
     Active Substance: POLYETHYLENE GLYCOL 3350
     Indication: GASTROINTESTINAL DISORDER
  2. MIRALAX [Suspect]
     Active Substance: POLYETHYLENE GLYCOL 3350
     Indication: CONSTIPATION
     Dosage: I FILLED THE POWDER TO THE INDICATED WHITE LINE, POUR IT IN 4 TO 8 OUNCES BEVERAGE FOR CONSTIPATION.
     Route: 048
     Dates: start: 202011, end: 202012

REACTIONS (1)
  - Drug ineffective [Unknown]

NARRATIVE: CASE EVENT DATE: 202011
